FAERS Safety Report 6014291-7 (Version None)
Quarter: 2008Q4

REPORT INFORMATION
  Report Type: 
  Country: None (occurrence: None)
  Receive Date: 20081219
  Receipt Date: 20080409
  Transmission Date: 20090506
  Serious: No
  Sender: FDA-Public Use
  Company Number: A0717589A

PATIENT
  Age: 61 Year
  Sex: Male

DRUGS (4)
  1. AVODART [Suspect]
     Indication: BENIGN PROSTATIC HYPERPLASIA
     Dosage: 1CAP PER DAY
     Route: 048
     Dates: start: 20071220
  2. VITAMIN B6 [Concomitant]
  3. VITAMIN [Concomitant]
  4. VITAMIN B-12 [Concomitant]

REACTIONS (5)
  - BLOOD HOMOCYSTEINE INCREASED [None]
  - DRUG INEFFECTIVE [None]
  - NOCTURIA [None]
  - THERAPEUTIC RESPONSE UNEXPECTED [None]
  - URINE FLOW DECREASED [None]
